FAERS Safety Report 7630171-5 (Version None)
Quarter: 2011Q3

REPORT INFORMATION
  Report Type: 
  Country: None (occurrence: None)
  Receive Date: 20110722
  Receipt Date: 20110708
  Transmission Date: 20111222
  Serious: Yes (Hospitalization)
  Sender: FDA-Public Use
  Company Number: PHHY2011BR61496

PATIENT
  Sex: Female

DRUGS (6)
  1. TOLAMIN [Concomitant]
     Route: 065
  2. CLONAZEPAM [Concomitant]
     Route: 065
  3. OMEPRAZOLE [Concomitant]
     Route: 065
  4. CICORZAGAPRINA [Concomitant]
     Route: 065
  5. DIOVAN HCT [Suspect]
     Dosage: 1 DF (320/12.5 MG), DAILY
     Route: 048
  6. ATENOLOL [Concomitant]
     Dosage: 50 MG, UNK
     Route: 065

REACTIONS (1)
  - FALL [None]
